FAERS Safety Report 10460220 (Version 1)
Quarter: 2014Q3

REPORT INFORMATION
  Report Type: Spontaneous
  Country: JP (occurrence: JP)
  Receive Date: 20140917
  Receipt Date: 20140917
  Transmission Date: 20150326
  Serious: Yes (Hospitalization, Other)
  Sender: FDA-Public Use
  Company Number: PHHY2014JP120064

PATIENT
  Age: 56 Year
  Sex: Female
  Weight: 53 kg

DRUGS (3)
  1. RIBAVIRIN. [Suspect]
     Active Substance: RIBAVIRIN
     Indication: CHRONIC HEPATITIS C
     Dosage: 600 MG/DAY
  2. INTERFERON ALFA-2B [Interacting]
     Active Substance: INTERFERON ALFA-2B
     Indication: CHRONIC HEPATITIS C
     Dosage: 6 OT FOR 2 WEEKS
  3. INTERFERON ALFA-2B [Interacting]
     Active Substance: INTERFERON ALFA-2B
     Dosage: 6 OT THREE TIMES PER WEEK

REACTIONS (6)
  - Arrhythmia [Unknown]
  - Drug interaction [Unknown]
  - Atrioventricular block second degree [Recovering/Resolving]
  - Palpitations [Unknown]
  - Supraventricular tachycardia [Recovering/Resolving]
  - Heart rate decreased [Unknown]
